FAERS Safety Report 18092970 (Version 7)
Quarter: 2023Q1

REPORT INFORMATION
  Report Type: Spontaneous
  Country: CA (occurrence: CA)
  Receive Date: 20200730
  Receipt Date: 20230116
  Transmission Date: 20230418
  Serious: Yes (Death, Hospitalization, Other)
  Sender: FDA-Public Use
  Company Number: CA-SAMSUNG BIOEPIS-SB-2020-23736

PATIENT
  Age: 54 Year
  Sex: Male
  Weight: 60 kg

DRUGS (3)
  1. INFLIXIMAB [Suspect]
     Active Substance: INFLIXIMAB
     Indication: Colitis ulcerative
     Route: 042
  2. DESOXIMETASONE [Concomitant]
     Active Substance: DESOXIMETASONE
     Indication: Product used for unknown indication
     Route: 065
  3. PREDNISONE [Concomitant]
     Active Substance: PREDNISONE
     Indication: Product used for unknown indication
     Dosage: UNKNOWN
     Route: 065

REACTIONS (17)
  - Asthenia [Fatal]
  - Nephrolithiasis [Fatal]
  - Anxiety [Fatal]
  - Condition aggravated [Fatal]
  - Mobility decreased [Fatal]
  - Dehydration [Fatal]
  - Diarrhoea [Fatal]
  - Poor venous access [Fatal]
  - Tracheostomy malfunction [Fatal]
  - Internal haemorrhage [Fatal]
  - Noninfective encephalitis [Fatal]
  - Respiration abnormal [Fatal]
  - Death [Fatal]
  - Therapeutic product effect incomplete [Fatal]
  - Off label use [Fatal]
  - Incorrect dose administered [Fatal]
  - Intentional product use issue [Fatal]
